FAERS Safety Report 14224128 (Version 1)
Quarter: 2017Q4

REPORT INFORMATION
  Report Type: Spontaneous
  Country: US (occurrence: None)
  Receive Date: 20171123
  Receipt Date: 20171123
  Transmission Date: 20180321
  Serious: Yes (Other)
  Sender: FDA-Public Use
  Company Number: None

PATIENT
  Sex: Female
  Weight: 85 kg

DRUGS (4)
  1. MIRENA [Suspect]
     Active Substance: LEVONORGESTREL
     Dosage: ?          QUANTITY:11;?
     Route: 015
     Dates: start: 20171019
  2. PARACETAMOL [Concomitant]
     Active Substance: ACETAMINOPHEN
  3. MAGNESIUM CITRATE. [Concomitant]
     Active Substance: MAGNESIUM CITRATE
  4. IBUPROFEN. [Concomitant]
     Active Substance: IBUPROFEN

REACTIONS (8)
  - Tinnitus [None]
  - Pain [None]
  - Vaginal discharge [None]
  - Intracranial pressure increased [None]
  - Migraine [None]
  - Muscle spasms [None]
  - Dizziness [None]
  - Vision blurred [None]

NARRATIVE: CASE EVENT DATE: 20171123
